FAERS Safety Report 15852106 (Version 1)
Quarter: 2019Q1

REPORT INFORMATION
  Report Type: Spontaneous
  Country: US (occurrence: US)
  Receive Date: 20190122
  Receipt Date: 20190122
  Transmission Date: 20190417
  Serious: Yes (Other)
  Sender: FDA-Public Use
  Company Number: US-AMGEN-USASP2019008759

PATIENT

DRUGS (1)
  1. PROCRIT [Suspect]
     Active Substance: ERYTHROPOIETIN
     Indication: PRODUCT USED FOR UNKNOWN INDICATION
     Dosage: UNK
     Route: 065

REACTIONS (24)
  - Cardiac disorder [Unknown]
  - Surgery [Unknown]
  - Dizziness postural [Unknown]
  - Diabetes mellitus [Not Recovered/Not Resolved]
  - Loss of consciousness [Unknown]
  - Polyarthritis [Not Recovered/Not Resolved]
  - Blood count abnormal [Not Recovered/Not Resolved]
  - Asthma [Not Recovered/Not Resolved]
  - Crohn^s disease [Not Recovered/Not Resolved]
  - Toothache [Unknown]
  - Osteoarthritis [Not Recovered/Not Resolved]
  - Blood disorder [Not Recovered/Not Resolved]
  - Fall [Unknown]
  - Bronchitis [Not Recovered/Not Resolved]
  - Hyperchlorhydria [Not Recovered/Not Resolved]
  - Gastric disorder [Not Recovered/Not Resolved]
  - Fatigue [Not Recovered/Not Resolved]
  - Eye operation [Unknown]
  - Gastric perforation [Unknown]
  - Immunodeficiency [Not Recovered/Not Resolved]
  - Brain injury [Not Recovered/Not Resolved]
  - Ill-defined disorder [Unknown]
  - Decreased appetite [Not Recovered/Not Resolved]
  - Intervertebral disc protrusion [Not Recovered/Not Resolved]
